FAERS Safety Report 24850559 (Version 3)
Quarter: 2025Q1

REPORT INFORMATION
  Report Type: Spontaneous
  Country: US (occurrence: US)
  Receive Date: 20250116
  Receipt Date: 20250130
  Transmission Date: 20250408
  Serious: Yes (Other)
  Sender: PFIZER
  Company Number: US-TAKEDA-2025TUS003003

PATIENT
  Age: 58 Year
  Sex: Male

DRUGS (8)
  1. BRENTUXIMAB VEDOTIN [Suspect]
     Active Substance: BRENTUXIMAB VEDOTIN
     Indication: Hodgkin^s disease stage IV
     Route: 065
  2. BRENTUXIMAB VEDOTIN [Suspect]
     Active Substance: BRENTUXIMAB VEDOTIN
     Indication: Lymphadenopathy
  3. DOXORUBICIN HYDROCHLORIDE [Suspect]
     Active Substance: DOXORUBICIN HYDROCHLORIDE
     Indication: Hodgkin^s disease stage IV
     Route: 065
  4. DOXORUBICIN HYDROCHLORIDE [Suspect]
     Active Substance: DOXORUBICIN HYDROCHLORIDE
     Indication: Lymphadenopathy
  5. DACARBAZINE [Suspect]
     Active Substance: DACARBAZINE
     Indication: Hodgkin^s disease stage IV
     Route: 065
  6. DACARBAZINE [Suspect]
     Active Substance: DACARBAZINE
     Indication: Lymphadenopathy
  7. VINBLASTINE [Suspect]
     Active Substance: VINBLASTINE
     Indication: Hodgkin^s disease stage IV
     Route: 065
  8. VINBLASTINE [Suspect]
     Active Substance: VINBLASTINE
     Indication: Lymphadenopathy

REACTIONS (2)
  - Gastrointestinal mucormycosis [Recovering/Resolving]
  - Gastrointestinal haemorrhage [Recovered/Resolved]
